FAERS Safety Report 8573192-0 (Version None)
Quarter: 2012Q3

REPORT INFORMATION
  Report Type: 
  Country: None (occurrence: None)
  Receive Date: 20120806
  Receipt Date: 20120730
  Transmission Date: 20120928
  Serious: Yes (Other)
  Sender: FDA-Public Use
  Company Number: CA-ELI_LILLY_AND_COMPANY-CA201208000344

PATIENT
  Age: 78 Year
  Sex: Female

DRUGS (6)
  1. METHOTREXATE [Concomitant]
  2. FOLIC ACID [Concomitant]
  3. PANTOPRAZOLE [Concomitant]
  4. FORTEO [Suspect]
     Indication: OSTEOPOROSIS
     Dosage: 20 UG, UNK
     Route: 058
     Dates: start: 20110914
  5. ACETAMINOPHEN [Concomitant]
  6. VITAMIN D [Concomitant]

REACTIONS (2)
  - BREAST CANCER [None]
  - BREAST MASS [None]
